FAERS Safety Report 19471267 (Version 1)
Quarter: 2021Q2

REPORT INFORMATION
  Report Type: Report from Study
  Country: US (occurrence: US)
  Receive Date: 20210628
  Receipt Date: 20210628
  Transmission Date: 20210717
  Serious: Yes (Hospitalization)
  Sender: FDA-Public Use
  Company Number: US-BAUSCH-BL-2021-022070

PATIENT
  Age: 74 Year
  Sex: Female

DRUGS (2)
  1. XIFAXAN [Suspect]
     Active Substance: RIFAXIMIN
     Indication: PRODUCT USED FOR UNKNOWN INDICATION
     Route: 048
     Dates: start: 2019, end: 2020
  2. XIFAXAN [Suspect]
     Active Substance: RIFAXIMIN
     Route: 048
     Dates: start: 2020

REACTIONS (3)
  - Hepatic encephalopathy [Unknown]
  - Therapy interrupted [Unknown]
  - Inability to afford medication [Unknown]

NARRATIVE: CASE EVENT DATE: 2020
